FAERS Safety Report 10149780 (Version 2)
Quarter: 2014Q2

REPORT INFORMATION
  Report Type: Spontaneous
  Country: US (occurrence: US)
  Receive Date: 20140502
  Receipt Date: 20140527
  Transmission Date: 20141212
  Serious: Yes (Hospitalization, Other)
  Sender: FDA-Public Use
  Company Number: US-JNJFOC-20140419635

PATIENT
  Sex: Female

DRUGS (3)
  1. XARELTO [Suspect]
     Indication: PRODUCT USED FOR UNKNOWN INDICATION
     Dosage: MAY BE 2013 ^NOT SURE^
     Route: 048
     Dates: end: 20140414
  2. TRIBENZOR [Concomitant]
     Indication: BLOOD PRESSURE ABNORMAL
     Route: 065
  3. SOTALOL [Concomitant]
     Indication: ATRIAL FIBRILLATION
     Route: 065

REACTIONS (1)
  - Gastric ulcer haemorrhage [Recovered/Resolved]
